FAERS Safety Report 5776442-9 (Version None)
Quarter: 2008Q2

REPORT INFORMATION
  Report Type: 
  Country: None (occurrence: None)
  Receive Date: 20080617
  Receipt Date: 20080617
  Transmission Date: 20081010
  Serious: Yes (Other)
  Sender: FDA-Public Use
  Company Number: None

PATIENT
  Age: 47 Year
  Sex: Male
  Weight: 68.9467 kg

DRUGS (1)
  1. DIGITEK 125 MCG [Suspect]
     Indication: CARDIAC FAILURE
     Dosage: 125 MCG ONCE DAILY ORAL
     Route: 048
     Dates: start: 20080124, end: 20080301

REACTIONS (4)
  - ASTHENIA [None]
  - MALAISE [None]
  - ORAL INTAKE REDUCED [None]
  - TREMOR [None]
